FAERS Safety Report 9061220 (Version 1)
Quarter: 2013Q1

REPORT INFORMATION
  Report Type: Spontaneous
  Country: US (occurrence: None)
  Receive Date: 20130206
  Receipt Date: 20130206
  Transmission Date: 20140127
  Serious: Yes (Other)
  Sender: FDA-Public Use
  Company Number: None

PATIENT
  Age: 7 Year
  Sex: Female
  Weight: 68.04 kg

DRUGS (1)
  1. OXCARBAZEPINE [Suspect]
     Indication: CONVULSION
     Dosage: 1 - 1 1/2 TABS BID PO
     Dates: end: 2005

REACTIONS (4)
  - Urticaria [None]
  - Abnormal behaviour [None]
  - Ocular hyperaemia [None]
  - Product substitution issue [None]
